FAERS Safety Report 9143062 (Version 1)
Quarter: 2013Q1

REPORT INFORMATION
  Report Type: Report from Study
  Country: FR (occurrence: FR)
  Receive Date: 20130306
  Receipt Date: 20130306
  Transmission Date: 20140127
  Serious: Yes (Other)
  Sender: FDA-Public Use
  Company Number: FR-ASTELLAS-2013EU001789

PATIENT
  Sex: Male

DRUGS (4)
  1. TACROLIMUS SYSTEMIC [Suspect]
     Indication: LIVER TRANSPLANT
     Dosage: UNK
     Route: 065
  2. TACROLIMUS SYSTEMIC [Suspect]
     Indication: INTESTINAL TRANSPLANT
  3. PREDNISONE [Concomitant]
     Indication: LIVER TRANSPLANT
     Dosage: UNK
     Route: 065
  4. PREDNISONE [Concomitant]
     Indication: INTESTINAL TRANSPLANT

REACTIONS (3)
  - Off label use [Unknown]
  - Hypertension [Unknown]
  - Diabetes mellitus [Unknown]
